FAERS Safety Report 16647690 (Version 1)
Quarter: 2019Q3

REPORT INFORMATION
  Report Type: Spontaneous
  Country: FR (occurrence: FR)
  Receive Date: 20190730
  Receipt Date: 20190730
  Transmission Date: 20191004
  Serious: Yes (Life-Threatening, Other)
  Sender: FDA-Public Use
  Company Number: FR-PFIZER INC-2019321001

PATIENT
  Age: 73 Year
  Sex: Male
  Weight: 117 kg

DRUGS (12)
  1. EPLERENONE. [Suspect]
     Active Substance: EPLERENONE
     Indication: CARDIAC FAILURE
     Dosage: 25 MG, 1X/DAY
     Route: 048
     Dates: end: 20190629
  2. ENTRESTO [Suspect]
     Active Substance: SACUBITRIL\VALSARTAN
     Indication: CARDIAC FAILURE
     Dosage: 2 DF, 1X/DAY
     Route: 048
     Dates: start: 20190621, end: 20190629
  3. L THYROXINE [Concomitant]
     Active Substance: LEVOTHYROXINE SODIUM
     Dosage: UNK
  4. ALLOPURINOL. [Concomitant]
     Active Substance: ALLOPURINOL
     Dosage: UNK
  5. GABAPENTINE [Concomitant]
     Active Substance: GABAPENTIN
     Dosage: UNK
  6. ATORVASTATINE [ATORVASTATIN] [Concomitant]
     Active Substance: ATORVASTATIN
     Dosage: UNK
  7. DIPROSONE [Concomitant]
     Active Substance: BETAMETHASONE DIPROPIONATE
     Dosage: UNK, 0.025% CREAM
  8. ARNICA MONTANA. [Concomitant]
     Active Substance: HOMEOPATHICS
     Dosage: UNK
  9. LASILIX SPECIAL [FUROSEMIDE] [Suspect]
     Active Substance: FUROSEMIDE
     Indication: CARDIAC FAILURE
     Dosage: 500 MG, 1X/DAY
     Route: 048
     Dates: end: 20190629
  10. BISOCE [Concomitant]
     Active Substance: BISOPROLOL
     Dosage: UNK
  11. IZALGI [Concomitant]
     Active Substance: ACETAMINOPHEN\OPIUM
     Dosage: UNK
  12. MINISINTROM [Concomitant]
     Active Substance: ACENOCOUMAROL
     Dosage: UNK

REACTIONS (2)
  - Hyperkalaemia [Recovering/Resolving]
  - Acute kidney injury [Recovering/Resolving]

NARRATIVE: CASE EVENT DATE: 20190621
